FAERS Safety Report 23019970 (Version 1)
Quarter: 2023Q4

REPORT INFORMATION
  Report Type: Spontaneous
  Country: US (occurrence: US)
  Receive Date: 20231003
  Receipt Date: 20231003
  Transmission Date: 20240110
  Serious: No
  Sender: FDA-Public Use
  Company Number: US-HIKMA PHARMACEUTICALS USA INC.-US-H14001-23-00422

PATIENT
  Sex: Female

DRUGS (2)
  1. DEXAMETHASONE [Suspect]
     Active Substance: DEXAMETHASONE
     Indication: Oral lichen planus
     Dosage: UNKNOWN
     Dates: start: 20230130
  2. DEXAMETHASONE [Suspect]
     Active Substance: DEXAMETHASONE
     Indication: Oral disorder

REACTIONS (6)
  - Drug hypersensitivity [Unknown]
  - Oral mucosal erythema [Unknown]
  - Peripheral swelling [Unknown]
  - Mouth swelling [Unknown]
  - Erythema [Unknown]
  - Product prescribing issue [Unknown]
